FAERS Safety Report 6804874-6 (Version None)
Quarter: 2010Q2

REPORT INFORMATION
  Report Type: 
  Country: None (occurrence: None)
  Receive Date: 20100628
  Receipt Date: 20070619
  Transmission Date: 20101027
  Serious: No
  Sender: FDA-Public Use
  Company Number: US-PFIZER INC-2007050044

PATIENT
  Sex: Male

DRUGS (4)
  1. GEODON [Suspect]
  2. LIPITOR [Concomitant]
  3. EFFEXOR [Concomitant]
  4. NORVASC [Concomitant]

REACTIONS (2)
  - GYNAECOMASTIA [None]
  - UNEVALUABLE EVENT [None]
